FAERS Safety Report 4798393-9 (Version None)
Quarter: 2005Q4

REPORT INFORMATION
  Report Type: 
  Country: None (occurrence: None)
  Receive Date: 20051014
  Receipt Date: 20051005
  Transmission Date: 20060501
  Serious: Yes (Other)
  Sender: FDA-Public Use
  Company Number: US-GLAXOSMITHKLINE-A0577149A

PATIENT
  Age: 55 Year
  Sex: Male
  Weight: 95 kg

DRUGS (3)
  1. NICORETTE [Suspect]
     Route: 002
  2. CRESTOR [Concomitant]
  3. TRICOR [Concomitant]

REACTIONS (4)
  - DENTAL CARIES [None]
  - DIABETES MELLITUS [None]
  - DRUG ABUSER [None]
  - INTENTIONAL DRUG MISUSE [None]
